FAERS Safety Report 6623030-8 (Version None)
Quarter: 2010Q1

REPORT INFORMATION
  Report Type: 
  Country: None (occurrence: None)
  Receive Date: 20100310
  Receipt Date: 20091204
  Transmission Date: 20100710
  Serious: No
  Sender: FDA-Public Use
  Company Number: US-BIOGENIDEC-2009BI039910

PATIENT
  Age: 23 Year
  Sex: Female

DRUGS (1)
  1. AVONEX [Suspect]
     Indication: MULTIPLE SCLEROSIS
     Route: 030
     Dates: start: 20071013

REACTIONS (10)
  - AMNESIA [None]
  - ASTHENIA [None]
  - DEPRESSION [None]
  - FATIGUE [None]
  - LOSS OF CONSCIOUSNESS [None]
  - NAUSEA [None]
  - NEUROPATHY PERIPHERAL [None]
  - PARAESTHESIA [None]
  - SLEEP PARALYSIS [None]
  - URTICARIA [None]
